FAERS Safety Report 25224656 (Version 1)
Quarter: 2025Q2

REPORT INFORMATION
  Report Type: Spontaneous
  Country: ES (occurrence: ES)
  Receive Date: 20250422
  Receipt Date: 20250422
  Transmission Date: 20250717
  Serious: Yes (Death, Other)
  Sender: AUROBINDO
  Company Number: ES-TAKEDA-2021TUS043975

PATIENT

DRUGS (5)
  1. AZACITIDINE [Suspect]
     Active Substance: AZACITIDINE
     Indication: Product used for unknown indication
     Route: 058
     Dates: start: 20210331
  2. AZACITIDINE [Suspect]
     Active Substance: AZACITIDINE
     Route: 058
     Dates: start: 20210426
  3. AZACITIDINE [Suspect]
     Active Substance: AZACITIDINE
     Route: 058
     Dates: start: 20210531
  4. PEVONEDISTAT [Suspect]
     Active Substance: PEVONEDISTAT
     Indication: Product used for unknown indication
     Route: 065
     Dates: start: 20210426
  5. PEVONEDISTAT [Suspect]
     Active Substance: PEVONEDISTAT
     Route: 065
     Dates: start: 20210531

REACTIONS (10)
  - Acute myeloid leukaemia [Fatal]
  - Cytopenia [Fatal]
  - Haematochezia [Fatal]
  - Thrombocytopenia [Fatal]
  - Pancytopenia [Fatal]
  - Lower gastrointestinal haemorrhage [Fatal]
  - General physical health deterioration [Fatal]
  - Pyrexia [Fatal]
  - Hyperhidrosis [Fatal]
  - Blood lactate dehydrogenase increased [Fatal]

NARRATIVE: CASE EVENT DATE: 20210622
